FAERS Safety Report 4275743-3 (Version None)
Quarter: 2004Q1

REPORT INFORMATION
  Report Type: 
  Country: None (occurrence: None)
  Receive Date: 20040121
  Receipt Date: 20040119
  Transmission Date: 20041129
  Serious: Yes (Life-Threatening)
  Sender: FDA-Public Use
  Company Number: PHRM2004FR00555

PATIENT
  Age: 81 Year
  Sex: Male

DRUGS (2)
  1. CIBADREX [Suspect]
     Dosage: 1 DF, QD
     Route: 048
     Dates: end: 20020717
  2. CELEBREX [Suspect]
     Route: 048
     Dates: end: 20020717

REACTIONS (6)
  - HAEMODIALYSIS [None]
  - HYPERKALAEMIA [None]
  - OLIGURIA [None]
  - RENAL ATROPHY [None]
  - RENAL FAILURE ACUTE [None]
  - URETERIC OBSTRUCTION [None]
